FAERS Safety Report 4848866-5 (Version None)
Quarter: 2005Q4

REPORT INFORMATION
  Report Type: 
  Country: None (occurrence: None)
  Receive Date: 20051208
  Receipt Date: 20050525
  Transmission Date: 20060501
  Serious: Yes (Hospitalization, Disabling)
  Sender: FDA-Public Use
  Company Number: US-MERCK-0505USA02906

PATIENT
  Age: 59 Year
  Sex: Female
  Weight: 91 kg

DRUGS (1)
  1. VIOXX [Suspect]
     Indication: OSTEOARTHRITIS
     Route: 048
     Dates: start: 20000920, end: 20040701

REACTIONS (13)
  - ANGINA PECTORIS [None]
  - ARTERIOSCLEROSIS CORONARY ARTERY [None]
  - BLOOD PRESSURE ABNORMAL [None]
  - CAROTID BRUIT [None]
  - CEREBROVASCULAR ACCIDENT [None]
  - CHEST PAIN [None]
  - LIMB INJURY [None]
  - MYOCARDIAL INFARCTION [None]
  - NECK INJURY [None]
  - ORGAN FAILURE [None]
  - PULMONARY EMBOLISM [None]
  - ROTATOR CUFF SYNDROME [None]
  - THROMBOSIS [None]
